FAERS Safety Report 16911221 (Version 1)
Quarter: 2019Q4

REPORT INFORMATION
  Report Type: Spontaneous
  Country: US (occurrence: US)
  Receive Date: 20190821
  Receipt Date: 20190821
  Transmission Date: 20200122
  Serious: No
  Sender: FDA-Public Use
  Company Number: None

PATIENT

DRUGS (2)
  1. KEPPRA LEVETIRACETAM [Suspect]
     Active Substance: LEVETIRACETAM
     Route: 058
  2. KEPPRA LEVETIRACETAM [Suspect]
     Active Substance: LEVETIRACETAM

REACTIONS (2)
  - Wrong product stored [None]
  - Product appearance confusion [None]
